FAERS Safety Report 6596772-0 (Version None)
Quarter: 2010Q1

REPORT INFORMATION
  Report Type: 
  Country: None (occurrence: None)
  Receive Date: 20100222
  Receipt Date: 20100222
  Transmission Date: 20100710
  Serious: Yes (Life-Threatening)
  Sender: FDA-Public Use
  Company Number: None

PATIENT
  Sex: Female
  Weight: 46.4 kg

DRUGS (2)
  1. ACTOS [Suspect]
     Indication: BLOOD GLUCOSE INCREASED
     Dosage: 15MG. ONCE A DAY
     Dates: start: 20091105, end: 20091212
  2. ACTOS [Suspect]
     Dosage: 30MG. ONCE A DAY

REACTIONS (4)
  - APHONIA [None]
  - EYE OEDEMA [None]
  - GALLBLADDER DISORDER [None]
  - VISION BLURRED [None]
